FAERS Safety Report 6606576-8 (Version None)
Quarter: 2010Q1

REPORT INFORMATION
  Report Type: 
  Country: None (occurrence: None)
  Receive Date: 20100226
  Receipt Date: 20100217
  Transmission Date: 20100710
  Serious: No
  Sender: FDA-Public Use
  Company Number: B0635022A

PATIENT
  Age: 10 Month

DRUGS (1)
  1. RELENZA [Suspect]
     Indication: INFLUENZA

REACTIONS (1)
  - DRUG EXPOSURE VIA BREAST MILK [None]
